FAERS Safety Report 23951910 (Version 1)
Quarter: 2024Q2

REPORT INFORMATION
  Report Type: Spontaneous
  Country: US (occurrence: US)
  Receive Date: 20240607
  Receipt Date: 20240607
  Transmission Date: 20240716
  Serious: Yes (Other)
  Sender: FDA-Public Use
  Company Number: US-DRL-USA-LIT/USA/24/0008127

PATIENT
  Age: 33 Year
  Sex: Male

DRUGS (4)
  1. FLUCONAZOLE [Suspect]
     Active Substance: FLUCONAZOLE
     Indication: Disseminated coccidioidomycosis
  2. AMPHOTERICIN B [Concomitant]
     Active Substance: AMPHOTERICIN B
     Indication: Disseminated coccidioidomycosis
  3. OLOROFIM [Concomitant]
     Active Substance: OLOROFIM
     Indication: Disseminated coccidioidomycosis
  4. MICAFUNGIN [Concomitant]
     Active Substance: MICAFUNGIN SODIUM
     Indication: Disseminated coccidioidomycosis

REACTIONS (2)
  - Disease progression [Recovered/Resolved]
  - Drug ineffective for unapproved indication [Recovered/Resolved]
